FAERS Safety Report 10003407 (Version 1)
Quarter: 2014Q1

REPORT INFORMATION
  Report Type: Report from Study
  Country: ES (occurrence: ES)
  Receive Date: 20140312
  Receipt Date: 20140312
  Transmission Date: 20141002
  Serious: Yes (Hospitalization)
  Sender: FDA-Public Use
  Company Number: PHHY2014ES028076

PATIENT
  Age: 47 Year
  Sex: Female

DRUGS (10)
  1. 5-FLUOROURACIL [Suspect]
     Indication: GASTROOESOPHAGEAL CANCER
     Dosage: 400 MG/M2, UNK
  2. 5-FLUOROURACIL [Suspect]
     Dosage: 720 MG/M2, 1 IN 2 WK
     Route: 040
     Dates: start: 20140131
  3. 5-FLUOROURACIL [Suspect]
     Dosage: 2400 MG/M2
     Route: 042
     Dates: start: 20140131
  4. 5-FLUOROURACIL [Suspect]
     Dosage: 4320 MG/M2, 1 IN 2 WK
     Route: 042
     Dates: start: 20140131
  5. FOLINIC ACID [Suspect]
     Indication: GASTROOESOPHAGEAL CANCER
     Dosage: 200 MG/M2, UNK
  6. FOLINIC ACID [Suspect]
     Dosage: 720 MG/M2, 1 IN 2 WK
     Route: 042
  7. OXALIPLATIN [Suspect]
     Indication: GASTROOESOPHAGEAL CANCER
     Dosage: 85 MG/M2, UNK
  8. OXALIPLATIN [Suspect]
     Dosage: 153 MG/M2, UNK
     Route: 042
     Dates: start: 20140131
  9. FENTANILO//FENTANYL [Concomitant]
     Indication: TUMOUR PAIN
     Route: 062
  10. DEXKETOPROFEN [Concomitant]
     Indication: TUMOUR PAIN
     Route: 048

REACTIONS (3)
  - Ileus paralytic [Recovered/Resolved]
  - Abdominal pain [Unknown]
  - Nausea [Unknown]
